FAERS Safety Report 5871988-7 (Version None)
Quarter: 2008Q3

REPORT INFORMATION
  Report Type: 
  Country: None (occurrence: None)
  Receive Date: 20080904
  Receipt Date: 20080904
  Transmission Date: 20090109
  Serious: Yes (Hospitalization)
  Sender: FDA-Public Use
  Company Number: None

PATIENT
  Age: 72 Year
  Sex: Male

DRUGS (9)
  1. PHENYTOIN [Suspect]
     Indication: CONVULSION
     Dosage: 125 MG BID PO
     Route: 048
     Dates: start: 20080501, end: 20080514
  2. CARBAMAZEPINE [Concomitant]
  3. PREVACID [Concomitant]
  4. APAP TAB [Concomitant]
  5. THIAMINE HCL [Concomitant]
  6. COLACE [Concomitant]
  7. BACITRACIN [Concomitant]
  8. SELENIUM SULFIDE [Concomitant]
  9. FOLIC ACID [Concomitant]

REACTIONS (4)
  - ANTICONVULSANT DRUG LEVEL INCREASED [None]
  - ATRIAL FIBRILLATION [None]
  - MENTAL STATUS CHANGES [None]
  - UNRESPONSIVE TO STIMULI [None]
